FAERS Safety Report 9125734 (Version 1)
Quarter: 2013Q1

REPORT INFORMATION
  Report Type: Spontaneous
  Country: CN (occurrence: CN)
  Receive Date: 20130117
  Receipt Date: 20130117
  Transmission Date: 20140127
  Serious: Yes (Disabling)
  Sender: FDA-Public Use
  Company Number: CN-ABBOTT-13P-035-1036852-00

PATIENT
  Age: 71 Year
  Sex: Male

DRUGS (1)
  1. ENANTONE [Suspect]
     Indication: PROSTATE CANCER
     Dosage: 3.75 MG
     Route: 058
     Dates: start: 201211

REACTIONS (1)
  - Visual impairment [Recovered/Resolved]
